FAERS Safety Report 7187069-9 (Version None)
Quarter: 2010Q4

REPORT INFORMATION
  Report Type: 
  Country: None (occurrence: None)
  Receive Date: 20101222
  Receipt Date: 20101216
  Transmission Date: 20110411
  Serious: Yes (Other)
  Sender: FDA-Public Use
  Company Number: GR-AMGEN-GRCSP2010006335

PATIENT

DRUGS (1)
  1. NPLATE [Suspect]
     Indication: IDIOPATHIC THROMBOCYTOPENIC PURPURA
     Dosage: 1 UNK, ONE TIME DOSE
     Dates: start: 20101101

REACTIONS (2)
  - PLATELET COUNT DECREASED [None]
  - THROMBOCYTOSIS [None]
